FAERS Safety Report 7646309-X (Version None)
Quarter: 2011Q3

REPORT INFORMATION
  Report Type: 
  Country: None (occurrence: None)
  Receive Date: 20110801
  Receipt Date: 20110719
  Transmission Date: 20111222
  Serious: Yes (Other)
  Sender: FDA-Public Use
  Company Number: US-ELI_LILLY_AND_COMPANY-US201107005703

PATIENT
  Sex: Male

DRUGS (4)
  1. HUMALOG [Suspect]
     Dosage: UNK, PRN
     Dates: start: 20010101
  2. HUMALOG [Suspect]
     Indication: TYPE 1 DIABETES MELLITUS
     Dosage: UNK, PRN
     Dates: start: 20010101
  3. HUMULIN 70/30 [Suspect]
     Dosage: UNK, UNKNOWN
     Route: 065
     Dates: start: 20010101
  4. HUMULIN 70/30 [Suspect]
     Indication: TYPE 1 DIABETES MELLITUS
     Dosage: UNK, UNKNOWN
     Route: 065
     Dates: start: 20010101

REACTIONS (9)
  - BLOOD GLUCOSE DECREASED [None]
  - SURGERY [None]
  - INFECTION [None]
  - DRUG INEFFECTIVE [None]
  - FALL [None]
  - PAIN [None]
  - BLOOD GLUCOSE INCREASED [None]
  - LOWER LIMB FRACTURE [None]
  - STAPHYLOCOCCAL INFECTION [None]
